FAERS Safety Report 9734999 (Version 1)
Quarter: 2013Q4

REPORT INFORMATION
  Report Type: Spontaneous
  Country: CN (occurrence: CN)
  Receive Date: 20131206
  Receipt Date: 20131206
  Transmission Date: 20140711
  Serious: Yes (Death, Other)
  Sender: FDA-Public Use
  Company Number: CN-ROCHE-1313115

PATIENT
  Age: 58 Year
  Sex: Female

DRUGS (6)
  1. ACTEMRA [Suspect]
     Indication: RHEUMATOID ARTHRITIS
     Route: 065
     Dates: start: 20131029
  2. ACTEMRA [Suspect]
     Indication: INFLAMMATION
     Route: 065
  3. LEFLUNOMIDE [Concomitant]
     Indication: RHEUMATOID ARTHRITIS
  4. HYDROXYCHLOROQUINE [Concomitant]
     Indication: RHEUMATOID ARTHRITIS
  5. AMINO ACID [Concomitant]
  6. DICLOFENAC SODIUM [Concomitant]

REACTIONS (4)
  - Lung infection [Fatal]
  - Interstitial lung disease [Unknown]
  - Demyelination [Unknown]
  - Blood creatinine increased [Unknown]
